FAERS Safety Report 25793164 (Version 2)
Quarter: 2025Q3

REPORT INFORMATION
  Report Type: Spontaneous
  Country: US (occurrence: US)
  Receive Date: 20250911
  Receipt Date: 20250929
  Transmission Date: 20251021
  Serious: No
  Sender: Haleon PLC
  Company Number: US-HALEON-2261989

PATIENT
  Age: 59 Year
  Sex: Female

DRUGS (1)
  1. ROBITUSSIN LONG-ACTING COUGH SOFT CHEWS [Suspect]
     Active Substance: DEXTROMETHORPHAN HYDROBROMIDE
     Indication: Oropharyngeal pain
     Dates: start: 20250903, end: 20250903

REACTIONS (3)
  - Product use in unapproved indication [Unknown]
  - Product taste abnormal [Unknown]
  - Product physical consistency issue [Unknown]

NARRATIVE: CASE EVENT DATE: 20250903
